FAERS Safety Report 5537950-9 (Version None)
Quarter: 2007Q4

REPORT INFORMATION
  Report Type: 
  Country: None (occurrence: None)
  Receive Date: 20071207
  Receipt Date: 20071126
  Transmission Date: 20080405
  Serious: Yes (Other)
  Sender: FDA-Public Use
  Company Number: FR-PFIZER INC-2007099928

PATIENT
  Sex: Female

DRUGS (3)
  1. RELPAX [Suspect]
     Indication: MIGRAINE
  2. GESTODENE [Concomitant]
  3. PARACETAMOL [Concomitant]

REACTIONS (2)
  - CHEST PAIN [None]
  - HYPERTENSIVE CRISIS [None]
